FAERS Safety Report 9706777 (Version 1)
Quarter: 2013Q4

REPORT INFORMATION
  Report Type: Report from Study
  Country: VE (occurrence: VE)
  Receive Date: 20131125
  Receipt Date: 20131125
  Transmission Date: 20140711
  Serious: Yes (Disabling, Other)
  Sender: FDA-Public Use
  Company Number: PHHY2013VE133956

PATIENT
  Age: 91 Year
  Sex: Female

DRUGS (1)
  1. ACLASTA [Suspect]
     Indication: OSTEOPOROSIS
     Dosage: 5 MG, ANNUAL
     Route: 042
     Dates: start: 20120417

REACTIONS (7)
  - Spinal column injury [Recovering/Resolving]
  - Mobility decreased [Recovering/Resolving]
  - Fall [Recovering/Resolving]
  - Blindness [Recovering/Resolving]
  - Incontinence [Recovering/Resolving]
  - General physical health deterioration [Recovering/Resolving]
  - Arthropathy [Unknown]
